FAERS Safety Report 13496489 (Version 1)
Quarter: 2017Q2

REPORT INFORMATION
  Report Type: Spontaneous
  Country: US (occurrence: US)
  Receive Date: 20170428
  Receipt Date: 20170428
  Transmission Date: 20170830
  Serious: No
  Sender: FDA-Public Use
  Company Number: US-009507513-1704USA003168

PATIENT
  Age: 15 Year
  Sex: Female
  Weight: 80.73 kg

DRUGS (1)
  1. NEXPLANON [Suspect]
     Active Substance: ETONOGESTREL
     Indication: CONTRACEPTION
     Dosage: UNK, EVERY THREE YEARS. ANATOMICAL LOCATION: LEFT ARM
     Route: 059
     Dates: start: 20170310

REACTIONS (2)
  - Menstrual disorder [Unknown]
  - Hypomenorrhoea [Unknown]

NARRATIVE: CASE EVENT DATE: 20170403
